FAERS Safety Report 14092283 (Version 1)
Quarter: 2017Q4

REPORT INFORMATION
  Report Type: Spontaneous
  Country: US (occurrence: US)
  Receive Date: 20171015
  Receipt Date: 20171015
  Transmission Date: 20180321
  Serious: Yes (Disabling)
  Sender: FDA-Public Use
  Company Number: None

PATIENT
  Sex: Male
  Weight: 65.25 kg

DRUGS (1)
  1. CLARAVIS [Suspect]
     Active Substance: ISOTRETINOIN
     Indication: ACNE
     Dosage: ?          QUANTITY:60 CAPSULE(S);?
     Route: 048
     Dates: start: 20170216, end: 20170806

REACTIONS (6)
  - Dizziness [None]
  - Suicidal ideation [None]
  - Depression [None]
  - School refusal [None]
  - Anxiety [None]
  - Irritable bowel syndrome [None]

NARRATIVE: CASE EVENT DATE: 20170905
